FAERS Safety Report 7211365-X (Version None)
Quarter: 2010Q4

REPORT INFORMATION
  Report Type: 
  Country: None (occurrence: None)
  Receive Date: 20101223
  Receipt Date: 20101209
  Transmission Date: 20110411
  Serious: Yes (Other)
  Sender: FDA-Public Use
  Company Number: 2010MA005179

PATIENT
  Age: 48 Year
  Sex: Female

DRUGS (7)
  1. RAMIPRIL [Suspect]
     Dates: end: 20101118
  2. LEVOTHYROXINE SODIUM [Concomitant]
  3. OILATUM [Concomitant]
  4. LEVOTHYROXINE SODIUM [Concomitant]
  5. OILATUM [Concomitant]
  6. LEVOTHYROXINE SODIUM [Concomitant]
  7. OILATUM [Concomitant]

REACTIONS (3)
  - DRY THROAT [None]
  - PRURITUS [None]
  - THIRST [None]
